FAERS Safety Report 11047324 (Version 4)
Quarter: 2015Q3

REPORT INFORMATION
  Report Type: Spontaneous
  Country: IE (occurrence: IE)
  Receive Date: 20150420
  Receipt Date: 20150810
  Transmission Date: 20151125
  Serious: Yes (Hospitalization)
  Sender: FDA-Public Use
  Company Number: IE-JNJFOC-20150306417

PATIENT
  Age: 83 Year
  Sex: Female

DRUGS (18)
  1. DIOVAN [Suspect]
     Active Substance: VALSARTAN
     Indication: HYPERTENSION
     Route: 048
  2. CENTYL K [Concomitant]
     Indication: HYPERTENSION
     Dosage: 1 OVER DOSE
     Route: 048
  3. STELARA [Suspect]
     Active Substance: USTEKINUMAB
     Indication: POLYMYALGIA RHEUMATICA
     Route: 058
     Dates: start: 20150120
  4. STELARA [Suspect]
     Active Substance: USTEKINUMAB
     Indication: VASCULITIS
     Route: 058
     Dates: start: 20150120
  5. STELARA [Suspect]
     Active Substance: USTEKINUMAB
     Indication: TEMPORAL ARTERITIS
     Route: 058
     Dates: start: 20150120
  6. IMURAN [Suspect]
     Active Substance: AZATHIOPRINE
     Indication: MYALGIA
     Route: 065
  7. CENTYL K [Concomitant]
     Indication: HYPERTENSION
     Route: 048
  8. NU-SEALS [Concomitant]
     Indication: TEMPORAL ARTERITIS
     Route: 048
     Dates: start: 20121023
  9. DELTACORTRIL [Concomitant]
     Active Substance: PREDNISOLONE
     Indication: TEMPORAL ARTERITIS
     Route: 048
  10. DIOVAN [Suspect]
     Active Substance: VALSARTAN
     Indication: HYPERTENSION
     Route: 048
  11. ONE ALPHA [Concomitant]
     Active Substance: ALFACALCIDOL
     Route: 065
  12. PANTOPRAZOLE [Concomitant]
     Active Substance: PANTOPRAZOLE SODIUM
     Indication: PROPHYLAXIS AGAINST GASTROINTESTINAL ULCER
     Route: 048
     Dates: start: 20121023
  13. PANTOPRAZOLE [Concomitant]
     Active Substance: PANTOPRAZOLE SODIUM
     Indication: PROPHYLAXIS AGAINST GASTROINTESTINAL ULCER
     Route: 048
  14. DELTACORTRIL [Concomitant]
     Active Substance: PREDNISOLONE
     Indication: TEMPORAL ARTERITIS
     Route: 048
     Dates: start: 20121023
  15. ACTONEL [Concomitant]
     Active Substance: RISEDRONATE SODIUM
     Indication: OSTEOPOROSIS
     Route: 065
  16. DELTACORTRIL [Concomitant]
     Active Substance: PREDNISOLONE
     Indication: TEMPORAL ARTERITIS
     Route: 048
  17. DELTACORTRIL [Concomitant]
     Active Substance: PREDNISOLONE
     Indication: TEMPORAL ARTERITIS
     Route: 048
  18. ACTONEL [Concomitant]
     Active Substance: RISEDRONATE SODIUM
     Indication: OSTEOPOROSIS
     Route: 065
     Dates: start: 20121023

REACTIONS (8)
  - Inappropriate schedule of drug administration [Unknown]
  - Product use issue [Unknown]
  - Drug prescribing error [Unknown]
  - Myalgia [Not Recovered/Not Resolved]
  - Kidney infection [Unknown]
  - Iron deficiency anaemia [Unknown]
  - Hiatus hernia [Unknown]
  - Renal impairment [Recovering/Resolving]

NARRATIVE: CASE EVENT DATE: 20150120
